FAERS Safety Report 24203819 (Version 5)
Quarter: 2024Q4

REPORT INFORMATION
  Report Type: Spontaneous
  Country: US (occurrence: US)
  Receive Date: 20240813
  Receipt Date: 20241008
  Transmission Date: 20250114
  Serious: No
  Sender: ROCHE
  Company Number: US-ROCHE-10000052296

PATIENT
  Age: 20 Year
  Sex: Female
  Weight: 97.52 kg

DRUGS (7)
  1. XOLAIR [Suspect]
     Active Substance: OMALIZUMAB
     Indication: Idiopathic urticaria
     Route: 058
  2. XOLAIR [Suspect]
     Active Substance: OMALIZUMAB
     Dosage: TAKES 2 XOLAIR OF 150MG
     Route: 058
     Dates: start: 202310
  3. XOLAIR [Suspect]
     Active Substance: OMALIZUMAB
     Route: 058
     Dates: start: 202301
  4. ZYRTEC [Concomitant]
     Active Substance: CETIRIZINE HYDROCHLORIDE
  5. ALLEGRA [Concomitant]
     Active Substance: FEXOFENADINE HYDROCHLORIDE
  6. MELATONIN [Concomitant]
     Active Substance: MELATONIN
  7. LEXAPRO [Concomitant]
     Active Substance: ESCITALOPRAM OXALATE

REACTIONS (9)
  - Wrong technique in device usage process [Unknown]
  - Syringe issue [Unknown]
  - Syringe issue [Unknown]
  - Product dose omission issue [Unknown]
  - Polycystic ovarian syndrome [Not Recovered/Not Resolved]
  - Obstructive sleep apnoea syndrome [Not Recovered/Not Resolved]
  - Product dose omission issue [Unknown]
  - Device breakage [Unknown]
  - Device defective [Unknown]

NARRATIVE: CASE EVENT DATE: 20240513
